FAERS Safety Report 24744625 (Version 7)
Quarter: 2025Q3

REPORT INFORMATION
  Report Type: Report from Study
  Country: US (occurrence: US)
  Receive Date: 20241217
  Receipt Date: 20250708
  Transmission Date: 20251020
  Serious: Yes (Other)
  Sender: EMD SERONO INC
  Company Number: US-Merck Healthcare KGaA-2024065455

PATIENT
  Sex: Female
  Weight: 59 kg

DRUGS (2)
  1. MAVENCLAD [Suspect]
     Active Substance: CLADRIBINE
     Indication: Multiple sclerosis
     Dates: start: 20240205
  2. MAVENCLAD [Suspect]
     Active Substance: CLADRIBINE
     Dates: start: 20240304, end: 20240308

REACTIONS (16)
  - Myelosuppression [Unknown]
  - Seizure [Unknown]
  - Laboratory test abnormal [Unknown]
  - Lymphocyte count decreased [Recovered/Resolved]
  - Multiple sclerosis relapse [Unknown]
  - Weight decreased [Unknown]
  - Urinary tract infection [Unknown]
  - Cognitive disorder [Unknown]
  - Condition aggravated [Unknown]
  - Speech disorder [Unknown]
  - Gait inability [Unknown]
  - General physical health deterioration [Unknown]
  - Impaired driving ability [Unknown]
  - Muscle spasms [Unknown]
  - Vomiting [Unknown]
  - Diarrhoea [Unknown]
